FAERS Safety Report 8922697 (Version 2)
Quarter: 2013Q1

REPORT INFORMATION
  Report Type: Spontaneous
  Country: US (occurrence: None)
  Receive Date: 20121115
  Receipt Date: 20121116
  Transmission Date: 20140127
  Serious: Yes (Hospitalization)
  Sender: FDA-Public Use
  Company Number: JPI-P-026119

PATIENT
  Age: 35 Year
  Sex: Female
  Weight: 73.94 kg

DRUGS (4)
  1. XYREM (500 MILLIGRAM/MILLILITERS, SOLUTION) (SODIUM OXYBATE) [Suspect]
     Indication: PAIN
     Dosage: UNKNOWN DOSE
     Route: 048
     Dates: start: 20090715, end: 20110328
  2. ACETAMINOPHEN [Suspect]
     Indication: PRODUCT USED FOR UNKNOWN INDICATION
     Route: 048
  3. UNSPECIFIED PAIN MEDICATION [Concomitant]
  4. UNSPECIFIED DEPRESSANTS (DOWNERS) [Concomitant]

REACTIONS (12)
  - Arthropod sting [None]
  - Pancreatitis acute [None]
  - Accidental overdose [None]
  - Affective disorder [None]
  - Dysstasia [None]
  - Breath odour [None]
  - Blood glucose increased [None]
  - Pain [None]
  - Scar [None]
  - Vomiting [None]
  - Abdominal pain upper [None]
  - Abdominal discomfort [None]
